FAERS Safety Report 8564035-X (Version None)
Quarter: 2012Q3

REPORT INFORMATION
  Report Type: 
  Country: None (occurrence: None)
  Receive Date: 20120803
  Receipt Date: 20120802
  Transmission Date: 20120928
  Serious: Yes (Hospitalization, Other)
  Sender: FDA-Public Use
  Company Number: PHEH2010US03401

PATIENT
  Sex: Female

DRUGS (39)
  1. REVLIMID [Concomitant]
     Dosage: 10 MG,
  2. RAMIPRIL [Concomitant]
  3. PEPCID [Concomitant]
     Dosage: 40 MG, UNK
  4. FUROSEMIDE [Concomitant]
  5. ALPRAZOLAM [Concomitant]
  6. ABILIFY [Concomitant]
  7. CHEMOTHERAPEUTICS [Concomitant]
  8. GEMFIBROZIL [Concomitant]
  9. DISODIUM HYDROGEN CITRATE [Concomitant]
  10. VERAPAMIL [Concomitant]
     Dosage: 80 MG, UNK
  11. METFORMIN HYDROCHLORIDE [Concomitant]
  12. PREDNISONE [Concomitant]
     Indication: MULTIPLE MYELOMA
  13. DEXAMETHASONE [Concomitant]
  14. PRILOSEC [Concomitant]
  15. ALBUTEROL [Concomitant]
  16. METOCLOPRAMIDE [Concomitant]
     Dosage: 10 MG, QID
  17. POTASSIUM [Concomitant]
     Dosage: 10 MG, UNK
  18. ONDANSETRON HCL [Concomitant]
     Dosage: 4 MG, UNK
     Route: 017
  19. METOPROLOL TARTRATE [Concomitant]
  20. BUSPIRONE HCL [Concomitant]
  21. HYDROCHLOROTHIAZIDE [Concomitant]
  22. ALTACE [Concomitant]
  23. LISINOPRIL [Concomitant]
  24. PREVACID [Concomitant]
  25. NITROGLYCERIN [Concomitant]
  26. CELEBREX [Concomitant]
  27. FLEXAR [Concomitant]
  28. LEXAPRO [Concomitant]
  29. AMITRIPTLINE HYDROCHLORIDE TAB [Concomitant]
  30. TRAMADOL HCL [Concomitant]
  31. LIPITOR [Concomitant]
  32. ASPIRIN [Concomitant]
     Dosage: 81 MG,
  33. LIPITOR [Concomitant]
  34. ZOMETA [Suspect]
     Indication: MULTIPLE MYELOMA
     Dates: end: 20090401
  35. COMPAZINE [Concomitant]
  36. MORPHINE SULFATE [Concomitant]
  37. OMEPRAZOLE [Concomitant]
  38. CARAFATE [Concomitant]
     Dosage: 1 G, QID
  39. MS CONTIN [Concomitant]
     Dosage: 30 MG, UNK
     Route: 048

REACTIONS (87)
  - PAIN [None]
  - EXPOSED BONE IN JAW [None]
  - NEUTROPENIA [None]
  - METASTASES TO BONE [None]
  - PALPITATIONS [None]
  - HIATUS HERNIA [None]
  - ANAEMIA [None]
  - SMALL INTESTINAL OBSTRUCTION [None]
  - ACUTE SINUSITIS [None]
  - THYROID DISORDER [None]
  - THROMBOCYTOPENIA [None]
  - GASTROENTERITIS [None]
  - ANXIETY [None]
  - PEPTIC ULCER [None]
  - GASTROOESOPHAGEAL REFLUX DISEASE [None]
  - CARDIAC DISORDER [None]
  - BREAST PAIN [None]
  - DEEP VEIN THROMBOSIS [None]
  - BENCE JONES PROTEINURIA [None]
  - PAIN IN EXTREMITY [None]
  - HAEMATEMESIS [None]
  - PYELONEPHRITIS [None]
  - JOINT SWELLING [None]
  - URINARY HESITATION [None]
  - DIABETES MELLITUS [None]
  - SPINAL OSTEOARTHRITIS [None]
  - DIZZINESS [None]
  - DYSLIPIDAEMIA [None]
  - OBESITY [None]
  - ASTHMA [None]
  - NIGHT SWEATS [None]
  - GASTRIC POLYPS [None]
  - CARDIOMEGALY [None]
  - SPLENOMEGALY [None]
  - MUSCULOSKELETAL PAIN [None]
  - VITAMIN B12 DEFICIENCY [None]
  - VENTRICULAR HYPERTROPHY [None]
  - AORTIC CALCIFICATION [None]
  - CONSTIPATION [None]
  - FIBROMYALGIA [None]
  - MONOCLONAL GAMMOPATHY [None]
  - URINARY RETENTION [None]
  - ARTHRITIS [None]
  - HYPOAESTHESIA [None]
  - CHEST PAIN [None]
  - ATELECTASIS [None]
  - PERIODONTITIS [None]
  - ORTHOPNOEA [None]
  - CEREBROVASCULAR ACCIDENT [None]
  - ARTERIOSCLEROSIS CORONARY ARTERY [None]
  - ARTHRALGIA [None]
  - NEUROPATHY PERIPHERAL [None]
  - GENERAL PHYSICAL HEALTH DETERIORATION [None]
  - DYSPNOEA [None]
  - SPINAL FRACTURE [None]
  - INTERVERTEBRAL DISC DEGENERATION [None]
  - OSTEOARTHRITIS [None]
  - CARDIAC FAILURE CONGESTIVE [None]
  - SCHIZOPHRENIA [None]
  - PANIC DISORDER WITHOUT AGORAPHOBIA [None]
  - DISABILITY [None]
  - INCISIONAL HERNIA [None]
  - URINARY TRACT INFECTION [None]
  - DEPRESSION [None]
  - LIPOMA [None]
  - EAR PAIN [None]
  - DYSURIA [None]
  - DENTAL CARIES [None]
  - ARRHYTHMIA [None]
  - MIGRAINE [None]
  - OEDEMA [None]
  - BACK PAIN [None]
  - ODYNOPHAGIA [None]
  - SYNCOPE [None]
  - NOCTURIA [None]
  - OSTEONECROSIS OF JAW [None]
  - BONE FRAGMENTATION [None]
  - ANHEDONIA [None]
  - BIPOLAR DISORDER [None]
  - HYPERTENSION [None]
  - VIRAL UPPER RESPIRATORY TRACT INFECTION [None]
  - EYE SWELLING [None]
  - TACHYCARDIA [None]
  - ABDOMINAL PAIN UPPER [None]
  - DIVERTICULUM INTESTINAL [None]
  - HYPOKALAEMIA [None]
  - OEDEMA PERIPHERAL [None]
